FAERS Safety Report 10162250 (Version 1)
Quarter: 2014Q2

REPORT INFORMATION
  Report Type: Spontaneous
  Country: US (occurrence: None)
  Receive Date: 20140508
  Receipt Date: 20140508
  Transmission Date: 20141212
  Serious: No
  Sender: FDA-Public Use
  Company Number: None

PATIENT
  Age: 77 Year
  Sex: Male

DRUGS (12)
  1. IMBRUVICA [Suspect]
     Indication: PRODUCT USED FOR UNKNOWN INDICATION
     Route: 048
     Dates: start: 20140409
  2. TYLENOL [Concomitant]
  3. INSULIN [Concomitant]
  4. VITAMIN D [Concomitant]
  5. LISINOPRIL [Concomitant]
  6. FUROSEMIDE [Concomitant]
  7. ALLOPURINOL [Concomitant]
  8. DOXYCLINE [Concomitant]
  9. WARFARIN [Concomitant]
  10. ACETAMINOPHEN [Concomitant]
  11. VITAMIN B [Concomitant]
  12. POTASSIUM CITRATE ER 10 MEQ [Concomitant]

REACTIONS (1)
  - Epistaxis [None]
